FAERS Safety Report 7585509-4 (Version None)
Quarter: 2011Q2

REPORT INFORMATION
  Report Type: 
  Country: None (occurrence: None)
  Receive Date: 20110628
  Receipt Date: 20110628
  Transmission Date: 20111010
  Serious: Yes (Death)
  Sender: FDA-Public Use
  Company Number: None

PATIENT
  Age: 47 Year
  Sex: Male
  Weight: 116.5744 kg

DRUGS (1)
  1. PRINZIDE [Suspect]
     Dates: start: 20110505

REACTIONS (3)
  - ANGIOEDEMA [None]
  - RESPIRATORY ARREST [None]
  - ENDOTRACHEAL INTUBATION COMPLICATION [None]
